FAERS Safety Report 4484303-0 (Version None)
Quarter: 2004Q3

REPORT INFORMATION
  Report Type: 
  Country: None (occurrence: None)
  Receive Date: 20040921
  Receipt Date: 20040129
  Transmission Date: 20050211
  Serious: Yes (Disabling)
  Sender: FDA-Public Use
  Company Number: 163-20785-04010794(0)

PATIENT
  Age: 43 Year
  Sex: Male

DRUGS (7)
  1. THALOMID [Suspect]
     Indication: GLIOBLASTOMA MULTIFORME
     Dosage: SEE IMAGE
     Route: 048
     Dates: start: 20031212, end: 20040117
  2. THALOMID [Suspect]
     Indication: GLIOBLASTOMA MULTIFORME
     Dosage: SEE IMAGE
     Route: 048
     Dates: start: 20040124
  3. CYCLOPHOSPHAMIDE [Suspect]
     Indication: GLIOBLASTOMA MULTIFORME
     Dosage: 100 MG, DAILY, ORAL
     Route: 048
     Dates: start: 20040102, end: 20040117
  4. ETOPOISDE (ETOPOSIDE) [Concomitant]
  5. CELECOXIB (CELECOXIB) [Concomitant]
  6. DILANTIN (PHENYTOIN SODUM) [Concomitant]
  7. ZANAC (RANITIDINE HYDROCHLORIDE) [Concomitant]

REACTIONS (2)
  - FATIGUE [None]
  - TREMOR [None]
